FAERS Safety Report 4928183-5 (Version None)
Quarter: 2006Q1

REPORT INFORMATION
  Report Type: 
  Country: None (occurrence: None)
  Receive Date: 20060223
  Receipt Date: 20060214
  Transmission Date: 20060701
  Serious: Yes (Hospitalization, Other)
  Sender: FDA-Public Use
  Company Number: USA-2006-0023391

PATIENT
  Age: 3 Month
  Sex: Female

DRUGS (1)
  1. CEFDITOREN PIVOXIL (CEFDITOREN PIVOXIL) [Suspect]
     Indication: IMPETIGO
     Dosage: 60 MG, DAILY, ORAL
     Route: 048
     Dates: start: 20060108, end: 20060109

REACTIONS (1)
  - AUTOIMMUNE NEUTROPENIA [None]
